FAERS Safety Report 7740976-8 (Version None)
Quarter: 2011Q3

REPORT INFORMATION
  Report Type: 
  Country: None (occurrence: None)
  Receive Date: 20110909
  Receipt Date: 20110816
  Transmission Date: 20111222
  Serious: No
  Sender: FDA-Public Use
  Company Number: US-BAYER-2011-073752

PATIENT
  Sex: Female

DRUGS (1)
  1. CLIMARA [Suspect]

REACTIONS (4)
  - PRODUCT ADHESION ISSUE [None]
  - APPLICATION SITE RASH [None]
  - HYPERHIDROSIS [None]
  - APPLICATION SITE PRURITUS [None]
